FAERS Safety Report 12156355 (Version 2)
Quarter: 2016Q1

REPORT INFORMATION
  Report Type: Spontaneous
  Country: GB (occurrence: GB)
  Receive Date: 20160307
  Receipt Date: 20160318
  Transmission Date: 20160526
  Serious: Yes (Other)
  Sender: FDA-Public Use
  Company Number: GB-ELI_LILLY_AND_COMPANY-GB201603001782

PATIENT
  Age: 65 Year
  Sex: Female

DRUGS (3)
  1. ERBITUX [Suspect]
     Active Substance: CETUXIMAB
     Indication: MALIGNANT ANORECTAL NEOPLASM
     Dosage: 850 MG, UNKNOWN
     Route: 042
  2. 5-FLUOROURACIL                     /00098801/ [Concomitant]
     Active Substance: FLUOROURACIL
     Indication: MALIGNANT ANORECTAL NEOPLASM
     Dosage: UNK UNK, UNKNOWN
     Route: 065
  3. FOLINIC ACID [Concomitant]
     Active Substance: LEUCOVORIN
     Indication: MALIGNANT ANORECTAL NEOPLASM
     Dosage: UNK UNK, UNKNOWN
     Route: 065

REACTIONS (5)
  - Eye discharge [Unknown]
  - Pain in extremity [Not Recovered/Not Resolved]
  - Dysphonia [Unknown]
  - Rhinorrhoea [Unknown]
  - Decubitus ulcer [Not Recovered/Not Resolved]
